FAERS Safety Report 21296674 (Version 1)
Quarter: 2022Q3

REPORT INFORMATION
  Report Type: Spontaneous
  Country: US (occurrence: None)
  Receive Date: 20220902
  Receipt Date: 20220902
  Transmission Date: 20221027
  Serious: Yes (Life-Threatening, Hospitalization)
  Sender: FDA-Public Use
  Company Number: None

PATIENT
  Age: 72 Year
  Sex: Male

DRUGS (1)
  1. APIXABAN [Suspect]
     Active Substance: APIXABAN
     Indication: Atrial fibrillation
     Dosage: FREQUENCY : TWICE A DAY;?
     Route: 048
     Dates: start: 20210707, end: 20220811

REACTIONS (5)
  - Gastric haemorrhage [None]
  - Dialysis [None]
  - Haemorrhoids [None]
  - Anaemia [None]
  - Duodenal vascular ectasia [None]

NARRATIVE: CASE EVENT DATE: 20220811
